FAERS Safety Report 5671237-9 (Version None)
Quarter: 2008Q1

REPORT INFORMATION
  Report Type: 
  Country: None (occurrence: None)
  Receive Date: 20080318
  Receipt Date: 20080306
  Transmission Date: 20080703
  Serious: Yes (Hospitalization)
  Sender: FDA-Public Use
  Company Number: AU-SANOFI-SYNTHELABO-A01200802742

PATIENT
  Sex: Male

DRUGS (8)
  1. VITAMIN B-12 [Concomitant]
     Indication: DRUG USE FOR UNKNOWN INDICATION
     Dosage: UNKNOWN (INJECTION)
     Route: 065
  2. PARIET [Concomitant]
     Indication: GASTROOESOPHAGEAL REFLUX DISEASE
     Route: 065
  3. STILNOX [Suspect]
     Indication: SLEEP DISORDER
     Dosage: UNK
     Route: 048
  4. PROZAC [Suspect]
     Indication: DRUG USE FOR UNKNOWN INDICATION
     Route: 065
  5. PROZAC [Suspect]
     Dosage: UNK
     Route: 065
     Dates: start: 19970101, end: 19980101
  6. PROZAC [Suspect]
     Dosage: UNK
     Route: 065
  7. XANAX [Suspect]
     Indication: NERVOUSNESS
     Dosage: 11 MG/DAY,  DECREASED TO 5 MG/DAY
     Route: 065
  8. XANAX [Suspect]
     Dosage: UNK
     Route: 065

REACTIONS (8)
  - COGNITIVE DISORDER [None]
  - DEPRESSED MOOD [None]
  - DRUG INTERACTION [None]
  - LOSS OF LIBIDO [None]
  - NEUROTOXICITY [None]
  - OBSESSIVE-COMPULSIVE DISORDER [None]
  - PANIC ATTACK [None]
  - SUICIDAL IDEATION [None]
